FAERS Safety Report 7950507-5 (Version None)
Quarter: 2011Q4

REPORT INFORMATION
  Report Type: 
  Country: None (occurrence: None)
  Receive Date: 20111130
  Receipt Date: 20111121
  Transmission Date: 20120403
  Serious: Yes (Hospitalization)
  Sender: FDA-Public Use
  Company Number: US-ASTRAZENECA-2010SE54623

PATIENT
  Age: 85 Year
  Sex: Female

DRUGS (1)
  1. SYMBICORT [Suspect]
     Dosage: 160/4.5 MCG 1 PUFF BID
     Route: 055

REACTIONS (4)
  - CARDIAC DISORDER [None]
  - EAR INFECTION [None]
  - NASOPHARYNGITIS [None]
  - MALAISE [None]
